FAERS Safety Report 8362322-1 (Version None)
Quarter: 2012Q2

REPORT INFORMATION
  Report Type: 
  Country: None (occurrence: None)
  Receive Date: 20120516
  Receipt Date: 20120508
  Transmission Date: 20120825
  Serious: Yes (Other)
  Sender: FDA-Public Use
  Company Number: US-AMGEN-USASP2012029229

PATIENT
  Sex: Male
  Weight: 95.238 kg

DRUGS (7)
  1. ENBREL [Suspect]
     Indication: RHEUMATOID ARTHRITIS
     Dosage: UNK
     Route: 058
     Dates: start: 20090101, end: 20090101
  2. VITAMINS                           /90003601/ [Concomitant]
     Dosage: UNK
  3. METOPROLOL SUCCINATE [Concomitant]
     Indication: BLOOD PRESSURE INCREASED
     Dosage: UNK
  4. PREDNISONE ACETATE [Concomitant]
     Dosage: 5 MG, QD
     Dates: start: 20100316, end: 20111109
  5. METHOTREXATE [Concomitant]
     Indication: RHEUMATOID ARTHRITIS
     Dosage: UNK
     Dates: start: 20060616, end: 20100222
  6. AMLODIPINE BESILATE [Concomitant]
     Indication: BLOOD PRESSURE INCREASED
     Dosage: UNK
  7. HUMIRA [Concomitant]
     Indication: RHEUMATOID ARTHRITIS
     Dosage: 40 MG, Q2WK
     Route: 058
     Dates: start: 20100830, end: 20110510

REACTIONS (3)
  - LUNG NEOPLASM MALIGNANT [None]
  - RHEUMATOID ARTHRITIS [None]
  - NEOPLASM MALIGNANT [None]
